FAERS Safety Report 7218212-0 (Version None)
Quarter: 2011Q1

REPORT INFORMATION
  Report Type: 
  Country: None (occurrence: None)
  Receive Date: 20110110
  Receipt Date: 20101228
  Transmission Date: 20110831
  Serious: No
  Sender: FDA-Public Use
  Company Number: US-B.I. PHARMACEUTICALS,INC./RIDGEFIELD-2010-BP-14437BP

PATIENT
  Sex: Female

DRUGS (2)
  1. METOPROLOL [Concomitant]
     Indication: CARDIAC DISORDER
  2. PRADAXA [Suspect]
     Indication: ATRIAL FIBRILLATION
     Dosage: 300 MG
     Route: 048
     Dates: start: 20101115

REACTIONS (5)
  - NAUSEA [None]
  - MELAENA [None]
  - HAEMATOCHEZIA [None]
  - DECREASED APPETITE [None]
  - DYSGEUSIA [None]
